FAERS Safety Report 18278567 (Version 2)
Quarter: 2020Q3

REPORT INFORMATION
  Report Type: Report from Study
  Country: US (occurrence: US)
  Receive Date: 20200917
  Receipt Date: 20200922
  Transmission Date: 20201103
  Serious: Yes (Death)
  Sender: FDA-Public Use
  Company Number: US-PFIZER INC-2020353714

PATIENT
  Age: 73 Year
  Sex: Female
  Weight: 81.5 kg

DRUGS (10)
  1. METOPROLOL TARTRATE. [Concomitant]
     Active Substance: METOPROLOL TARTRATE
     Indication: SUPRAVENTRICULAR EXTRASYSTOLES
     Dosage: 25 MG, 1X/DAY
     Route: 048
     Dates: start: 201908
  2. HYDROCODONE [Suspect]
     Active Substance: HYDROCODONE
     Indication: PAIN
     Dosage: 700 MG, 1X/DAY (700 MG,EVERY BEDTIME)
     Route: 048
     Dates: start: 20200217, end: 20200727
  3. AMLODIPINE BESILATE [Concomitant]
     Active Substance: AMLODIPINE BESYLATE
     Indication: SUPRAVENTRICULAR EXTRASYSTOLES
     Dosage: 5 MG, 1X/DAY
     Route: 048
     Dates: start: 20140910
  4. PALBOCICLIB [Suspect]
     Active Substance: PALBOCICLIB
     Indication: COLON CANCER
     Dosage: 100 MG, 1X/DAY
     Route: 048
     Dates: start: 20200727, end: 20200831
  5. KLOR?CON [Suspect]
     Active Substance: POTASSIUM CHLORIDE
     Indication: HYPOKALAEMIA
     Dosage: 10 MEQ, 2X/DAY
     Route: 048
     Dates: start: 20180619
  6. OXYCODONE [Suspect]
     Active Substance: OXYCODONE
     Indication: PAIN
     Dosage: 10 MG, AS NEEDED (40 MG (10 MG,AS NEEDED))
     Route: 048
     Dates: start: 20200727
  7. LASIX [Concomitant]
     Active Substance: FUROSEMIDE
     Indication: SUPRAVENTRICULAR EXTRASYSTOLES
     Dosage: 20 MG, 1X/DAY
     Route: 048
     Dates: start: 20180619
  8. CB 839 [Suspect]
     Active Substance: TELAGLENASTAT
     Indication: COLON CANCER
     Dosage: 800 MG, 2X/DAY (1600 MG (800 MG,2 IN 1 D))
     Route: 048
     Dates: start: 20200727, end: 20200830
  9. NAPROSYN [Concomitant]
     Active Substance: NAPROXEN
     Dosage: 500 MG, 1X/DAY
     Route: 048
  10. DURAGESIC [Concomitant]
     Active Substance: FENTANYL
     Indication: PAIN
     Dosage: 50 (50 ,1 IN 72 HR)
     Route: 061
     Dates: start: 202006

REACTIONS (1)
  - Cardiac arrest [Fatal]

NARRATIVE: CASE EVENT DATE: 20200908
